FAERS Safety Report 7429098-3 (Version None)
Quarter: 2011Q2

REPORT INFORMATION
  Report Type: 
  Country: None (occurrence: None)
  Receive Date: 20110421
  Receipt Date: 20110418
  Transmission Date: 20111010
  Serious: Yes (Other)
  Sender: FDA-Public Use
  Company Number: US-ROCHE-758362

PATIENT
  Sex: Female
  Weight: 70.8 kg

DRUGS (10)
  1. TIAZAC [Concomitant]
     Dosage: FREQUENCY: TQD
     Route: 048
     Dates: start: 19930101
  2. NEXIUM [Concomitant]
     Dosage: FREQUENCY: TQD
     Route: 048
     Dates: start: 20070101
  3. ASCORBIC ACID [Concomitant]
  4. BONIVA [Suspect]
     Indication: OSTEOPENIA
     Route: 048
     Dates: start: 20080425, end: 20110121
  5. LEVOTHYROXINE SODIUM [Concomitant]
     Dosage: FREQUENCY: TQD
     Route: 048
     Dates: start: 20090101
  6. EVISTA [Concomitant]
     Dosage: FREQUENCY: TQD
     Route: 048
     Dates: start: 19950101
  7. KLOR-CON [Concomitant]
  8. CALTRATE 600 + D [Concomitant]
  9. HYDROCHLOROTHIAZIDE [Concomitant]
     Indication: BLOOD PRESSURE
     Dosage: FREQUENCY: TQD
     Route: 048
     Dates: start: 20000101
  10. ASPIRIN [Concomitant]

REACTIONS (1)
  - RENAL ATROPHY [None]
